FAERS Safety Report 8396164-8 (Version None)
Quarter: 2012Q2

REPORT INFORMATION
  Report Type: 
  Country: None (occurrence: None)
  Receive Date: 20120530
  Receipt Date: 20120523
  Transmission Date: 20120825
  Serious: Yes (Life-Threatening)
  Sender: FDA-Public Use
  Company Number: CO-GLAXOSMITHKLINE-A0979179A

PATIENT
  Age: 37 Year
  Sex: Female

DRUGS (3)
  1. LITHIUM [Concomitant]
  2. LAMICTAL [Suspect]
     Indication: BIPOLAR DISORDER
     Dosage: 50MG PER DAY
     Dates: start: 20111201
  3. LEXAPRO [Concomitant]
     Dosage: 75MG PER DAY

REACTIONS (5)
  - LIP SWELLING [None]
  - PRURITUS [None]
  - HAEMORRHAGE [None]
  - PERIORBITAL OEDEMA [None]
  - DYSPNOEA [None]
